FAERS Safety Report 24659187 (Version 4)
Quarter: 2024Q4

REPORT INFORMATION
  Report Type: Report from Study
  Country: KR (occurrence: KR)
  Receive Date: 20241125
  Receipt Date: 20241230
  Transmission Date: 20250114
  Serious: Yes (Hospitalization)
  Sender: PFIZER
  Company Number: KR-PFIZER INC-PV202400150585

PATIENT
  Age: 53 Year
  Sex: Male
  Weight: 68.45 kg

DRUGS (17)
  1. LORLATINIB [Suspect]
     Active Substance: LORLATINIB
     Indication: Neoplasm malignant
     Dosage: 75 MG, 1X/DAY
     Route: 048
     Dates: start: 20200716, end: 20241117
  2. ATORVASTATIN [Concomitant]
     Active Substance: ATORVASTATIN
     Indication: Hyperlipidaemia
     Dosage: 20 MG, QD
     Route: 048
     Dates: start: 20200729
  3. FENOFIBRATE [Concomitant]
     Active Substance: FENOFIBRATE
     Indication: Hyperlipidaemia
     Dosage: 160 MG, QD
     Route: 048
     Dates: start: 20241007
  4. FENOFIBRATE [Concomitant]
     Active Substance: FENOFIBRATE
     Dosage: 160 MG (1 TAB), QD
     Route: 048
     Dates: start: 20241119, end: 20241125
  5. GRANDPHEROL [Concomitant]
     Dosage: 400 IU (1CAP), 2X/DAY
     Route: 048
     Dates: start: 20241119, end: 20241125
  6. ALFOCAN [Concomitant]
     Dosage: 400 MG (1 TAB), 2X/DAY
     Route: 048
     Dates: start: 20241119, end: 20241125
  7. LINAGLIPTIN [Concomitant]
     Active Substance: LINAGLIPTIN
     Dosage: 5 MG (1TAB), 1X/DAY
     Route: 048
     Dates: start: 20241119, end: 20241125
  8. METFORMIN HYDROCHLORIDE [Concomitant]
     Active Substance: METFORMIN HYDROCHLORIDE
     Dosage: 850 MG (1 TAB), 2X/DAY
     Route: 048
     Dates: start: 20241119, end: 20241125
  9. LIPINON [Concomitant]
     Dosage: 80 MG(1 TAB), 1X/DAY
     Route: 048
     Dates: start: 20241119, end: 20241125
  10. EZET [Concomitant]
     Dosage: 10 MG (1 TAB), 1X/DAY
     Route: 048
     Dates: start: 20241119, end: 20241125
  11. KEPPRA [Concomitant]
     Active Substance: LEVETIRACETAM
     Dosage: 500 MG (1 TAB), 2X/DAY
     Route: 048
     Dates: start: 20241119, end: 20241125
  12. PROPRANOLOL HYDROCHLORIDE [Concomitant]
     Active Substance: PROPRANOLOL HYDROCHLORIDE
     Dosage: 20 MG (0.5 TAB), 2X/DAY
     Route: 048
     Dates: start: 20241119, end: 20241125
  13. BOLGRE [FERRIC ACETYL TRANSFERRIN] [Concomitant]
     Dosage: 1 DF (IRON ACETYLTRANSFERRIN 200MG, FE3+: 40MG), 2X/DAY
     Route: 048
     Dates: start: 20241119, end: 20241125
  14. FUROSEMIDE [Concomitant]
     Active Substance: FUROSEMIDE
     Indication: Pleural effusion
     Dosage: 40 MG (1 TAB), 2X/DAY
     Route: 048
     Dates: start: 20241121, end: 20241125
  15. ACETPHEN PREMIX [Concomitant]
     Dosage: 1000 MG
     Route: 042
     Dates: start: 20241120, end: 20241125
  16. TRISONE KIT [Concomitant]
     Dosage: UNK
     Dates: start: 20241120, end: 20241122
  17. BANAN [Concomitant]
     Active Substance: CEFPODOXIME PROXETIL
     Dosage: 200 MG, 2X/DAY
     Route: 048
     Dates: start: 20241123, end: 20241124

REACTIONS (2)
  - Pulmonary oedema [Recovered/Resolved]
  - Pleural effusion [Recovering/Resolving]

NARRATIVE: CASE EVENT DATE: 20241101
